FAERS Safety Report 8144415-7 (Version None)
Quarter: 2012Q1

REPORT INFORMATION
  Report Type: 
  Country: None (occurrence: None)
  Receive Date: 20120217
  Receipt Date: 20120207
  Transmission Date: 20120608
  Serious: Yes (Hospitalization, Other)
  Sender: FDA-Public Use
  Company Number: CA-JNJFOC-20120205648

PATIENT
  Sex: Male
  Weight: 63 kg

DRUGS (8)
  1. ALL OTHER THERAPEUTICS [Concomitant]
     Route: 048
  2. REMICADE [Suspect]
     Indication: COLITIS ULCERATIVE
     Route: 042
     Dates: start: 20111212
  3. POTASSIUM CHLORIDE [Concomitant]
     Route: 065
  4. LIPITOR [Concomitant]
     Route: 048
  5. REMICADE [Suspect]
     Dosage: 4TH INFUSION
     Route: 042
     Dates: start: 20120207
  6. EZETIMIBE [Concomitant]
     Route: 048
  7. CORTIFOAM [Concomitant]
     Route: 054
  8. LEVOTHYROXINE SODIUM [Concomitant]
     Route: 048

REACTIONS (7)
  - LOWER RESPIRATORY TRACT INFECTION [None]
  - ABDOMINAL PAIN [None]
  - NAIL INFECTION [None]
  - INFUSION RELATED REACTION [None]
  - OEDEMA PERIPHERAL [None]
  - BODY TEMPERATURE INCREASED [None]
  - NAIL DISORDER [None]
